FAERS Safety Report 7338897-8 (Version None)
Quarter: 2011Q1

REPORT INFORMATION
  Report Type: 
  Country: None (occurrence: None)
  Receive Date: 20110308
  Receipt Date: 20110228
  Transmission Date: 20110831
  Serious: Yes (Hospitalization, Other)
  Sender: FDA-Public Use
  Company Number: US-ROCHE-552273

PATIENT
  Sex: Male
  Weight: 56.7 kg

DRUGS (1)
  1. ACCUTANE [Suspect]
     Indication: ACNE
     Dosage: ACCORDING TO MEDICAL RECORD HIS LAST DOSE OF ACCUTANE WAS IN SEPTEMBER 2000.
     Route: 065
     Dates: start: 20000214, end: 20000701

REACTIONS (13)
  - COLITIS ULCERATIVE [None]
  - INFLAMMATORY BOWEL DISEASE [None]
  - ANAL STENOSIS [None]
  - CHOLANGITIS SCLEROSING [None]
  - CROHN'S DISEASE [None]
  - HEPATITIS [None]
  - POUCHITIS [None]
  - DEPRESSION [None]
  - HYDROCELE [None]
  - COLITIS [None]
  - LIVER DISORDER [None]
  - DYSPHAGIA [None]
  - HERNIA [None]
